FAERS Safety Report 7711787-4 (Version None)
Quarter: 2011Q3

REPORT INFORMATION
  Report Type: 
  Country: None (occurrence: None)
  Receive Date: 20110822
  Receipt Date: 20110817
  Transmission Date: 20111222
  Serious: Yes (Death, Life-Threatening, Disabling, Other)
  Sender: FDA-Public Use
  Company Number: 2011SP015825

PATIENT
  Age: 21 Year
  Sex: Male

DRUGS (3)
  1. SAPHRIS [Suspect]
     Indication: BIPOLAR DISORDER
     Dosage: 10 MG;BID;SL
     Route: 060
     Dates: start: 20110101
  2. SAPHRIS [Suspect]
     Indication: SCHIZOPHRENIA
     Dosage: 10 MG;BID;SL
     Route: 060
     Dates: start: 20110101
  3. ZYPREXA [Concomitant]

REACTIONS (5)
  - PARANOIA [None]
  - GUN SHOT WOUND [None]
  - PANIC ATTACK [None]
  - AGITATION [None]
  - TREATMENT NONCOMPLIANCE [None]
